FAERS Safety Report 7080881-6 (Version None)
Quarter: 2010Q4

REPORT INFORMATION
  Report Type: 
  Country: None (occurrence: None)
  Receive Date: 20101103
  Receipt Date: 20101025
  Transmission Date: 20110411
  Serious: Yes (Hospitalization)
  Sender: FDA-Public Use
  Company Number: KP-ASTRAZENECA-2010SE50362

PATIENT
  Age: 24834 Day
  Sex: Male

DRUGS (7)
  1. CRESTOR [Suspect]
     Indication: HYPERLIPIDAEMIA
     Route: 048
     Dates: start: 20041021
  2. LASIX [Concomitant]
     Indication: CARDIAC FAILURE CHRONIC
     Dates: start: 20031113
  3. SELBEX [Concomitant]
     Indication: PROPHYLAXIS AGAINST GASTROINTESTINAL ULCER
     Dates: start: 20031113
  4. ASPIRIN [Concomitant]
     Indication: ARTERIOSCLEROSIS
     Dates: start: 20031113
  5. ETRAVIL [Concomitant]
     Indication: DEPRESSION
     Dates: start: 20051021
  6. DISGREN [Concomitant]
     Indication: ARTERIOSCLEROSIS
     Dates: start: 20050113
  7. AIRTAL [Concomitant]
     Indication: PAIN
     Dates: start: 20050113

REACTIONS (1)
  - PULMONARY OEDEMA [None]
